FAERS Safety Report 6600655-7 (Version None)
Quarter: 2010Q1

REPORT INFORMATION
  Report Type: 
  Country: None (occurrence: None)
  Receive Date: 20100223
  Receipt Date: 20100223
  Transmission Date: 20100710
  Serious: Yes (Hospitalization)
  Sender: FDA-Public Use
  Company Number: None

PATIENT
  Age: 70 Year
  Sex: Female
  Weight: 65.9 kg

DRUGS (5)
  1. SAHA(VORINSTAT) [Suspect]
     Indication: LUNG NEOPLASM MALIGNANT
     Dosage: 400MG D1-14 PO
     Route: 048
     Dates: start: 20100118, end: 20100121
  2. SAHA(VORINSTAT) [Suspect]
     Indication: LUNG NEOPLASM MALIGNANT
     Dosage: 400MG D1-14 PO
     Route: 048
     Dates: start: 20100125, end: 20100131
  3. BORTEZOMIB [Suspect]
     Indication: LUNG NEOPLASM MALIGNANT
     Dosage: 2.2 MG   D1, 4, 8, 11  I V
     Route: 042
     Dates: start: 20100118
  4. BORTEZOMIB [Suspect]
     Indication: LUNG NEOPLASM MALIGNANT
     Dosage: 2.2 MG   D1, 4, 8, 11  I V
     Route: 042
     Dates: start: 20100121
  5. BORTEZOMIB [Suspect]
     Indication: LUNG NEOPLASM MALIGNANT
     Dosage: 2.2 MG   D1, 4, 8, 11  I V
     Route: 042
     Dates: start: 20100125

REACTIONS (1)
  - PERICARDIAL EFFUSION [None]
